FAERS Safety Report 7194138-6 (Version None)
Quarter: 2010Q4

REPORT INFORMATION
  Report Type: 
  Country: None (occurrence: None)
  Receive Date: 20101223
  Receipt Date: 20101011
  Transmission Date: 20110411
  Serious: No
  Sender: FDA-Public Use
  Company Number: US-AMGEN-TCS435987

PATIENT

DRUGS (1)
  1. ENBREL [Suspect]
     Indication: RHEUMATOID ARTHRITIS
     Dosage: 50 MG, Q2WK
     Route: 058
     Dates: start: 20070307

REACTIONS (6)
  - ARTHRALGIA [None]
  - CHILLS [None]
  - INCORRECT STORAGE OF DRUG [None]
  - NAUSEA [None]
  - PYREXIA [None]
  - SINUSITIS [None]
